FAERS Safety Report 6038581-7 (Version None)
Quarter: 2009Q1

REPORT INFORMATION
  Report Type: 
  Country: None (occurrence: None)
  Receive Date: 20090115
  Receipt Date: 20090109
  Transmission Date: 20090719
  Serious: Yes (Hospitalization)
  Sender: FDA-Public Use
  Company Number: A0744970A

PATIENT
  Age: 53 Year
  Sex: Male
  Weight: 129.5 kg

DRUGS (3)
  1. AVANDIA [Suspect]
     Dosage: .5TAB TWICE PER DAY
     Route: 048
     Dates: start: 20050201, end: 20060201
  2. ZOCOR [Concomitant]
  3. TRAZODONE HCL [Concomitant]

REACTIONS (1)
  - ISCHAEMIC STROKE [None]
